FAERS Safety Report 6507579-4 (Version None)
Quarter: 2009Q4

REPORT INFORMATION
  Report Type: 
  Country: None (occurrence: None)
  Receive Date: 20091221
  Receipt Date: 20081205
  Transmission Date: 20100525
  Serious: No
  Sender: FDA-Public Use
  Company Number: US-BRISTOL-MYERS SQUIBB COMPANY-14432959

PATIENT
  Age: 70 Year
  Sex: Male
  Weight: 82 kg

DRUGS (5)
  1. PRAVACHOL [Suspect]
     Indication: BLOOD CHOLESTEROL INCREASED
     Dates: start: 20081021, end: 20080101
  2. PROVENTIL GENTLEHALER [Concomitant]
  3. ASPIRIN [Concomitant]
  4. FISH OIL [Concomitant]
  5. ADVAIR DISKUS 100/50 [Concomitant]

REACTIONS (1)
  - URTICARIA [None]
